FAERS Safety Report 10445753 (Version 1)
Quarter: 2014Q3

REPORT INFORMATION
  Report Type: Spontaneous
  Country: GB (occurrence: GB)
  Receive Date: 20140910
  Receipt Date: 20140910
  Transmission Date: 20150326
  Serious: Yes (Death, Other)
  Sender: FDA-Public Use
  Company Number: GB-ACTAVIS-2014-19487

PATIENT
  Age: 37 Year
  Sex: Male
  Weight: 59 kg

DRUGS (2)
  1. MORPHINE [Concomitant]
     Active Substance: MORPHINE
     Indication: INTERVERTEBRAL DISC PROTRUSION
     Dosage: UNK
     Route: 065
     Dates: end: 201004
  2. OXYCODONE (UNKNOWN) [Suspect]
     Active Substance: OXYCODONE
     Indication: INTERVERTEBRAL DISC PROTRUSION
     Dosage: 10 MG, BID; ONE DOSE IN THE MORNING, ONE AT NIGHT.
     Route: 065
     Dates: start: 201004

REACTIONS (6)
  - Liver injury [Not Recovered/Not Resolved]
  - Renal injury [Not Recovered/Not Resolved]
  - Completed suicide [Fatal]
  - Vomiting [Recovered/Resolved]
  - Abnormal loss of weight [Not Recovered/Not Resolved]
  - Toxicity to various agents [Not Recovered/Not Resolved]

NARRATIVE: CASE EVENT DATE: 20140124
